FAERS Safety Report 9863480 (Version 1)
Quarter: 2014Q1

REPORT INFORMATION
  Report Type: Spontaneous
  Country: UY (occurrence: UY)
  Receive Date: 20140203
  Receipt Date: 20140203
  Transmission Date: 20141002
  Serious: Yes (Other)
  Sender: FDA-Public Use
  Company Number: UY-BAYER-2014-015663

PATIENT
  Age: 54 Year
  Sex: Female

DRUGS (9)
  1. MIRENA [Suspect]
     Indication: ENDOMETRIAL HYPERPLASIA
     Dosage: UNK
     Route: 015
  2. AMOXIDAL PLUS [Concomitant]
  3. CEFUROXIME [Concomitant]
     Dosage: 500 MG/DAY
  4. LOSARTAN [Concomitant]
  5. FUROSEMIDE [Concomitant]
  6. ATORVASTATIN [Concomitant]
  7. FLUXANTIN [Concomitant]
  8. LEVOTHYROXINE [Concomitant]
  9. INSULIN [Concomitant]

REACTIONS (4)
  - Urinary tract infection [None]
  - Metrorrhagia [Recovered/Resolved]
  - Uterine haemorrhage [Recovered/Resolved]
  - Off label use [Not Recovered/Not Resolved]
